FAERS Safety Report 5188345-1 (Version None)
Quarter: 2006Q4

REPORT INFORMATION
  Report Type: 
  Country: None (occurrence: None)
  Receive Date: 20061214
  Receipt Date: 20061201
  Transmission Date: 20070319
  Serious: Yes (Other)
  Sender: FDA-Public Use
  Company Number: 2006087352

PATIENT
  Age: 61 Year
  Sex: Female

DRUGS (4)
  1. PROVERA [Suspect]
     Indication: HORMONE REPLACEMENT THERAPY
     Dosage: 5 MG (5 MG), ORAL; SEE IMAGE
     Route: 048
     Dates: start: 19891001, end: 19910601
  2. PROVERA [Suspect]
     Indication: HORMONE REPLACEMENT THERAPY
     Dosage: 5 MG (5 MG), ORAL; SEE IMAGE
     Route: 048
     Dates: start: 19920801, end: 19950101
  3. PREMARIN [Suspect]
     Indication: HORMONE REPLACEMENT THERAPY
     Dosage: 1.25 MG (1.25 MG)
     Dates: start: 19891001, end: 19910601
  4. PREMARIN [Suspect]
     Indication: HORMONE REPLACEMENT THERAPY
     Dosage: 1.25 MG (1.25 MG)
     Dates: start: 19920801, end: 19950101

REACTIONS (1)
  - BREAST CANCER FEMALE [None]
